FAERS Safety Report 7538218-1 (Version None)
Quarter: 2011Q2

REPORT INFORMATION
  Report Type: 
  Country: None (occurrence: None)
  Receive Date: 20110609
  Receipt Date: 20031211
  Transmission Date: 20111010
  Serious: Yes (Other)
  Sender: FDA-Public Use
  Company Number: PHHO2003CA14046

PATIENT
  Sex: Male

DRUGS (1)
  1. CLOZAPINE [Suspect]
     Indication: SCHIZOPHRENIA
     Dosage: 100 MG, BID
     Route: 048
     Dates: start: 20030408

REACTIONS (3)
  - MYOCARDIAL ISCHAEMIA [None]
  - ELECTROCARDIOGRAM T WAVE ABNORMAL [None]
  - ABDOMINAL PAIN UPPER [None]
